FAERS Safety Report 13750258 (Version 2)
Quarter: 2018Q1

REPORT INFORMATION
  Report Type: Spontaneous
  Country: JP (occurrence: JP)
  Receive Date: 20170713
  Receipt Date: 20180108
  Transmission Date: 20180508
  Serious: Yes (Other)
  Sender: FDA-Public Use
  Company Number: JP-BAUSCH-BL-2017-021208

PATIENT
  Age: 54 Year
  Sex: Female

DRUGS (1)
  1. PREDNISOLONE. [Suspect]
     Active Substance: PREDNISOLONE
     Indication: EYELID OEDEMA
     Dosage: ABOUT 7 TIMES A MONTH AS NECESSARY
     Route: 065

REACTIONS (1)
  - Symptom masked [Recovered/Resolved]
